FAERS Safety Report 9922151 (Version 1)
Quarter: 2014Q1

REPORT INFORMATION
  Report Type: Spontaneous
  Country: US (occurrence: None)
  Receive Date: 20140224
  Receipt Date: 20140224
  Transmission Date: 20141002
  Serious: Yes (Other)
  Sender: FDA-Public Use
  Company Number: None

PATIENT
  Age: 74 Year
  Sex: Female

DRUGS (1)
  1. FORTEO 600MCG/2.4ML ELI LILLY [Suspect]
     Indication: OSTEOPOROSIS
     Route: 058
     Dates: start: 201205

REACTIONS (4)
  - Arrhythmia [None]
  - Ventricular extrasystoles [None]
  - Palpitations [None]
  - Extrasystoles [None]
